FAERS Safety Report 11223791 (Version 1)
Quarter: 2015Q2

REPORT INFORMATION
  Report Type: Spontaneous
  Country: US (occurrence: None)
  Receive Date: 20150625
  Receipt Date: 20150625
  Transmission Date: 20150821
  Serious: No
  Sender: FDA-Public Use
  Company Number: None

PATIENT
  Age: 60 Year
  Sex: Female

DRUGS (12)
  1. FUROSEMIDE. [Concomitant]
     Active Substance: FUROSEMIDE
  2. AMPYRA [Suspect]
     Active Substance: DALFAMPRIDINE
     Indication: MULTIPLE SCLEROSIS
     Route: 048
     Dates: start: 201105
  3. HYDRALAZINE [Concomitant]
     Active Substance: HYDRALAZINE HYDROCHLORIDE
  4. BACLOFEN. [Concomitant]
     Active Substance: BACLOFEN
  5. CHOLECALCIFEROL [Concomitant]
     Active Substance: CHOLECALCIFEROL
  6. TOLTERODINE [Concomitant]
     Active Substance: TOLTERODINE
  7. LISINOPRIL. [Concomitant]
     Active Substance: LISINOPRIL
  8. KCL [Concomitant]
     Active Substance: POTASSIUM CHLORIDE
  9. ASA [Concomitant]
     Active Substance: ASPIRIN
  10. ATENOLOL. [Concomitant]
     Active Substance: ATENOLOL
  11. AMLODIPINE [Concomitant]
     Active Substance: AMLODIPINE BESYLATE
  12. SIMVASTATIN. [Concomitant]
     Active Substance: SIMVASTATIN

REACTIONS (1)
  - Urine analysis abnormal [None]

NARRATIVE: CASE EVENT DATE: 20150604
